FAERS Safety Report 4441450-7 (Version None)
Quarter: 2004Q3

REPORT INFORMATION
  Report Type: 
  Country: None (occurrence: None)
  Receive Date: 20040728
  Receipt Date: 20040503
  Transmission Date: 20050211
  Serious: No
  Sender: FDA-Public Use
  Company Number: USA040566555

PATIENT
  Age: 3 Year
  Sex: Male

DRUGS (3)
  1. STRATTERA [Suspect]
     Indication: ABNORMAL BEHAVIOUR
     Dosage: 18 MG
     Dates: start: 20040430
  2. STRATTERA [Suspect]
     Indication: CONVULSION
     Dosage: 18 MG
     Dates: start: 20040430
  3. LAMICTAL [Concomitant]

REACTIONS (2)
  - FEELING ABNORMAL [None]
  - MYDRIASIS [None]
